FAERS Safety Report 25017213 (Version 1)
Quarter: 2025Q1

REPORT INFORMATION
  Report Type: Spontaneous
  Country: JP (occurrence: JP)
  Receive Date: 20250227
  Receipt Date: 20250227
  Transmission Date: 20250408
  Serious: Yes (Hospitalization, Other)
  Sender: Phathom Pharmaceuticals
  Company Number: JP-PHATHOM PHARMACEUTICALS INC.-2025PHT00378

PATIENT
  Age: 75 Year
  Sex: Female

DRUGS (1)
  1. VONOPRAZAN FUMARATE [Suspect]
     Active Substance: VONOPRAZAN FUMARATE
     Indication: Gastrooesophageal reflux disease
     Route: 048

REACTIONS (3)
  - Hypokalaemia [Unknown]
  - Seizure [Unknown]
  - Hypomagnesaemia [Unknown]
